FAERS Safety Report 18991506 (Version 1)
Quarter: 2021Q1

REPORT INFORMATION
  Report Type: Spontaneous
  Country: US (occurrence: US)
  Receive Date: 20210310
  Receipt Date: 20210310
  Transmission Date: 20210420
  Serious: Yes (Hospitalization, Other)
  Sender: FDA-Public Use
  Company Number: US-TEVA-2021-US-1887136

PATIENT
  Age: 42 Year
  Sex: Female

DRUGS (23)
  1. AUSTEDO [Suspect]
     Active Substance: DEUTETRABENAZINE
     Indication: TARDIVE DYSKINESIA
     Dosage: 12 MILLIGRAM DAILY;
     Route: 065
     Dates: start: 20210218
  2. LEVOTHYROXINE SODIUM. [Concomitant]
     Active Substance: LEVOTHYROXINE SODIUM
     Route: 048
  3. IRON (FORROUS GLUCONATE) [Concomitant]
     Dosage: 256 (28 FE) MG
     Route: 048
  4. HYDROXYZINE HCL [Concomitant]
     Active Substance: HYDROXYZINE HYDROCHLORIDE
     Route: 048
  5. ZOLPIDEM TARTRATE ER [Concomitant]
     Active Substance: ZOLPIDEM TARTRATE
     Dosage: TABLET EXTENDED RELEASE
     Route: 048
  6. VITAMIN E BLEND [Concomitant]
     Dosage: 400 UNIT
     Route: 048
  7. SERTRALINE HCL [Concomitant]
     Active Substance: SERTRALINE HYDROCHLORIDE
     Route: 048
  8. CYCLOBEZAPRINE HCL [Concomitant]
     Route: 048
  9. VYVANSE [Concomitant]
     Active Substance: LISDEXAMFETAMINE DIMESYLATE
     Route: 048
  10. LITHIUM CARBONATE ER [Concomitant]
     Active Substance: LITHIUM CARBONATE
     Dosage: TABLET EXTENDED RELEASE
     Route: 048
  11. TOPIRAMAT [Concomitant]
     Active Substance: TOPIRAMATE
     Route: 048
  12. IBU [Concomitant]
     Active Substance: IBUPROFEN
     Route: 048
  13. POTASSIUM CHLORIDE CRYS ER [Concomitant]
     Active Substance: POTASSIUM CHLORIDE
     Dosage: TABLET EXTENDED RELEASE
     Route: 048
  14. CALCIUM + D [Concomitant]
     Active Substance: CALCIUM\VITAMIN D
     Dosage: 315?200 MG UNIT
     Route: 048
  15. VITAMIN D [Concomitant]
     Active Substance: VITAMIN D NOS
     Dosage: 400 UNIT
     Route: 048
  16. PROPRANOLOL HCL [Concomitant]
     Active Substance: PROPRANOLOL HYDROCHLORIDE
     Route: 048
  17. B COMPLEX 50 [Concomitant]
     Route: 048
  18. ASENAPINE MALEATE SUBLINGUAL TABLET [Concomitant]
     Route: 060
  19. HYDROCHLOROTHIAZIDE. [Concomitant]
     Active Substance: HYDROCHLOROTHIAZIDE
     Route: 048
  20. UBIQUINOL [Concomitant]
     Active Substance: UBIQUINOL
     Route: 048
  21. ZOFRAN [Concomitant]
     Active Substance: ONDANSETRON HYDROCHLORIDE
     Route: 048
  22. GINSENG [Concomitant]
     Active Substance: ASIAN GINSENG
     Route: 048
  23. MELATONIN [Concomitant]
     Active Substance: MELATONIN
     Route: 048

REACTIONS (9)
  - Hyperhidrosis [Unknown]
  - Hallucination, auditory [Unknown]
  - Muscle discomfort [Unknown]
  - Sinusitis [Unknown]
  - Headache [Unknown]
  - Pyrexia [Unknown]
  - Lymphadenopathy [Unknown]
  - Dyskinesia [Unknown]
  - Faeces discoloured [Unknown]
